FAERS Safety Report 8616000-1 (Version None)
Quarter: 2012Q3

REPORT INFORMATION
  Report Type: 
  Country: None (occurrence: None)
  Receive Date: 20120823
  Receipt Date: 20120815
  Transmission Date: 20120928
  Serious: Yes (Other)
  Sender: FDA-Public Use
  Company Number: US-MPIJNJ-2012-03585

PATIENT

DRUGS (11)
  1. ZOCOR [Concomitant]
     Indication: PRODUCT USED FOR UNKNOWN INDICATION
  2. AREDIA [Concomitant]
     Indication: PRODUCT USED FOR UNKNOWN INDICATION
  3. DEXAMETHASONE [Suspect]
     Indication: MULTIPLE MYELOMA
  4. VELCADE [Suspect]
     Indication: MULTIPLE MYELOMA
     Dosage: 2 MG, 1/WEEK
     Route: 042
     Dates: start: 20090401, end: 20110210
  5. CYCLOPHOSPHAMIDE [Suspect]
     Indication: MULTIPLE MYELOMA
  6. ACTONEL [Concomitant]
  7. LENALIDOMIDE [Suspect]
     Indication: MULTIPLE MYELOMA
  8. BISPHOSPHONATES [Concomitant]
     Indication: PRODUCT USED FOR UNKNOWN INDICATION
  9. LASIX [Concomitant]
  10. MULTI VITAMIN AND MINERAL + SELENIUM [Concomitant]
     Indication: PRODUCT USED FOR UNKNOWN INDICATION
  11. COMADIN [Concomitant]
     Indication: PRODUCT USED FOR UNKNOWN INDICATION
     Dosage: UNK

REACTIONS (1)
  - CHALAZION [None]
